FAERS Safety Report 6173300-5 (Version None)
Quarter: 2009Q2

REPORT INFORMATION
  Report Type: 
  Country: None (occurrence: None)
  Receive Date: 20090430
  Receipt Date: 20090424
  Transmission Date: 20091009
  Serious: Yes (Other)
  Sender: FDA-Public Use
  Company Number: US-ELI_LILLY_AND_COMPANY-US200904005879

PATIENT
  Sex: Male

DRUGS (11)
  1. FORTEO [Suspect]
     Indication: OSTEOPOROSIS
     Dosage: 20 UG, DAILY (1/D)
     Dates: start: 20020101, end: 20020101
  2. FORTEO [Suspect]
     Dosage: 20 UG, DAILY (1/D)
  3. LASIX [Concomitant]
  4. PROPRANOLOL [Concomitant]
  5. SPIRONOLACTONE [Concomitant]
  6. KLOR-CON [Concomitant]
  7. IRON [Concomitant]
  8. CALCIUM [Concomitant]
  9. CENTRUM /00554501/ [Concomitant]
  10. GLIMEPIRIDE [Concomitant]
  11. ADVAIR HFA [Concomitant]

REACTIONS (9)
  - ACCIDENT [None]
  - BRAIN INJURY [None]
  - CLAVICLE FRACTURE [None]
  - CONTUSION [None]
  - JOINT DISLOCATION [None]
  - MEMORY IMPAIRMENT [None]
  - MUSCULOSKELETAL DISCOMFORT [None]
  - MUSCULOSKELETAL STIFFNESS [None]
  - TYPE 2 DIABETES MELLITUS [None]
